FAERS Safety Report 7310732-3 (Version None)
Quarter: 2011Q1

REPORT INFORMATION
  Report Type: 
  Country: None (occurrence: None)
  Receive Date: 20110224
  Receipt Date: 20110210
  Transmission Date: 20110831
  Serious: Yes (Hospitalization, Other)
  Sender: FDA-Public Use
  Company Number: PHHY2011JP10299

PATIENT
  Age: 80 Year
  Sex: Female

DRUGS (3)
  1. MAINTATE [Concomitant]
     Dosage: UNK
     Route: 048
  2. BUFFERIN [Concomitant]
     Dosage: 81 MG, UNK
     Route: 048
  3. LOCHOL [Suspect]
     Indication: DYSLIPIDAEMIA
     Dosage: 30 MG, DAILY
     Route: 048

REACTIONS (3)
  - INTERSTITIAL LUNG DISEASE [None]
  - LOW DENSITY LIPOPROTEIN INCREASED [None]
  - CATARACT [None]
